FAERS Safety Report 12846452 (Version 1)
Quarter: 2016Q4

REPORT INFORMATION
  Report Type: Spontaneous
  Country: GB (occurrence: GB)
  Receive Date: 20161014
  Receipt Date: 20161014
  Transmission Date: 20170207
  Serious: Yes (Hospitalization)
  Sender: FDA-Public Use
  Company Number: GB-ACCORD-044796

PATIENT
  Age: 82 Year
  Sex: Female
  Weight: 73 kg

DRUGS (9)
  1. LOPERAMIDE [Concomitant]
     Active Substance: LOPERAMIDE
  2. DOXYCYCLINE. [Concomitant]
     Active Substance: DOXYCYCLINE
  3. SERTRALINE [Suspect]
     Active Substance: SERTRALINE HYDROCHLORIDE
     Indication: DEPRESSION
     Dosage: IN THE MORNING.?LARGE DOSE OF SERTRALINE.
     Route: 048
  4. BISOPROLOL [Concomitant]
     Active Substance: BISOPROLOL
  5. RANITIDINE ACTAVIS UK [Concomitant]
  6. LEVOTHYROXINE. [Concomitant]
     Active Substance: LEVOTHYROXINE
  7. APIXABAN [Concomitant]
     Active Substance: APIXABAN
  8. ATORVASTATIN [Concomitant]
     Active Substance: ATORVASTATIN
  9. DIGOXIN. [Concomitant]
     Active Substance: DIGOXIN

REACTIONS (3)
  - Diarrhoea [Not Recovered/Not Resolved]
  - Gastrointestinal stoma complication [Unknown]
  - Hypomagnesaemia [Unknown]
